FAERS Safety Report 5333598-X (Version None)
Quarter: 2007Q2

REPORT INFORMATION
  Report Type: 
  Country: None (occurrence: None)
  Receive Date: 20070308
  Receipt Date: 20070117
  Transmission Date: 20071010
  Serious: No
  Sender: FDA-Public Use
  Company Number: 2006-BP-12935BP

PATIENT
  Age: 63 Year
  Sex: Female

DRUGS (6)
  1. SPIRIVA [Suspect]
     Indication: CHRONIC OBSTRUCTIVE PULMONARY DISEASE
     Dosage: 18 MCG (18 MCG, 1 IN 1 D), IH
     Route: 055
     Dates: start: 20060201
  2. SPIRIVA [Suspect]
  3. ADVAIR (SERETIDE) [Concomitant]
  4. ALBUTEROL [Concomitant]
  5. CLONAPIN (CLONAZEPAM) [Concomitant]
  6. LEXAPRO [Concomitant]

REACTIONS (3)
  - DRUG INEFFECTIVE [None]
  - DYSPNOEA [None]
  - PULMONARY FUNCTION TEST DECREASED [None]
